FAERS Safety Report 8168242-X (Version None)
Quarter: 2012Q1

REPORT INFORMATION
  Report Type: 
  Country: None (occurrence: None)
  Receive Date: 20120227
  Receipt Date: 20120223
  Transmission Date: 20120608
  Serious: Yes (Death, Other)
  Sender: FDA-Public Use
  Company Number: PHHY2012FR001242

PATIENT
  Sex: Male

DRUGS (9)
  1. ANTICOAGULANTS [Concomitant]
  2. VENTOLIN [Concomitant]
  3. ONBREZ [Suspect]
     Indication: ASTHMA
  4. SPIRIVA [Suspect]
  5. ONBREZ [Suspect]
     Indication: CHRONIC OBSTRUCTIVE PULMONARY DISEASE
  6. ONBREZ [Suspect]
     Indication: RESPIRATORY FAILURE
     Dosage: 300 UG, QD
     Dates: start: 20111201
  7. CORTISONE ACETATE [Concomitant]
  8. LASIX [Concomitant]
  9. ASPIRIN [Concomitant]

REACTIONS (2)
  - CARDIAC ARREST [None]
  - HAEMOPTYSIS [None]
